FAERS Safety Report 8112149-0 (Version None)
Quarter: 2012Q1

REPORT INFORMATION
  Report Type: 
  Country: None (occurrence: None)
  Receive Date: 20120203
  Receipt Date: 20120130
  Transmission Date: 20120608
  Serious: Yes (Death, Life-Threatening, Hospitalization, Congenital Anomaly, Other)
  Sender: FDA-Public Use
  Company Number: US-PFIZER INC-2008051543

PATIENT
  Sex: Female
  Weight: 2.9 kg

DRUGS (5)
  1. ZOLOFT [Suspect]
     Indication: DEPRESSION
     Dosage: 50 MG, UNK
     Route: 064
     Dates: start: 20070215
  2. ZOLOFT [Suspect]
     Indication: ANXIETY
  3. MULTI-VITAMINS [Concomitant]
     Dosage: UNK
     Route: 064
  4. ASCORBIC ACID [Concomitant]
     Dosage: UNK
     Route: 064
  5. FOLIC ACID [Concomitant]
     Dosage: UNK
     Route: 064

REACTIONS (22)
  - ACIDOSIS [None]
  - LOWER RESPIRATORY TRACT INFECTION [None]
  - PULMONARY VALVE DISEASE [None]
  - SEPSIS NEONATAL [None]
  - KNEE DEFORMITY [None]
  - CARDIOMEGALY [None]
  - PLEURAL EFFUSION [None]
  - CARDIAC FAILURE [None]
  - ARTERIAL THROMBOSIS LIMB [None]
  - TRICUSPID VALVE INCOMPETENCE [None]
  - ASTHENIA [None]
  - HYPOPLASTIC LEFT HEART SYNDROME [None]
  - RIGHT ATRIAL DILATATION [None]
  - PNEUMONIA VIRAL [None]
  - AORTIC VALVE INCOMPETENCE [None]
  - CARDIO-RESPIRATORY ARREST [None]
  - LEFT VENTRICULAR HYPERTROPHY [None]
  - JAUNDICE NEONATAL [None]
  - DEVELOPMENTAL DELAY [None]
  - FOETAL EXPOSURE DURING PREGNANCY [None]
  - RIGHT VENTRICULAR DYSFUNCTION [None]
  - CHOLELITHIASIS [None]
